FAERS Safety Report 6217239-5 (Version None)
Quarter: 2009Q2

REPORT INFORMATION
  Report Type: 
  Country: None (occurrence: None)
  Receive Date: 20090608
  Receipt Date: 20090525
  Transmission Date: 20091009
  Serious: Yes (Hospitalization)
  Sender: FDA-Public Use
  Company Number: JP-PFIZER INC-2009220935

PATIENT
  Age: 65 Year

DRUGS (2)
  1. CHAMPIX [Suspect]
     Dates: start: 20090219
  2. ANTIHYPERTENSIVES [Concomitant]
     Indication: HYPERTENSION

REACTIONS (4)
  - ALOPECIA [None]
  - ECZEMA [None]
  - MADAROSIS [None]
  - TENDON RUPTURE [None]
